FAERS Safety Report 10752443 (Version 1)
Quarter: 2015Q1

REPORT INFORMATION
  Report Type: Spontaneous
  Country: US (occurrence: US)
  Receive Date: 20150130
  Receipt Date: 20150130
  Transmission Date: 20150721
  Serious: No
  Sender: FDA-Public Use
  Company Number: US-GLAXOSMITHKLINE-US2014036363

PATIENT
  Age: 54 Year
  Sex: Male

DRUGS (17)
  1. ARAVA [Concomitant]
     Active Substance: LEFLUNOMIDE
  2. XANAX [Concomitant]
     Active Substance: ALPRAZOLAM
  3. PLAQUENIL [Concomitant]
     Active Substance: HYDROXYCHLOROQUINE SULFATE
  4. LYRICA [Concomitant]
     Active Substance: PREGABALIN
  5. PRILOSEC [Concomitant]
     Active Substance: OMEPRAZOLE MAGNESIUM
  6. BACLOFEN. [Concomitant]
     Active Substance: BACLOFEN
  7. VIAGRA [Concomitant]
     Active Substance: SILDENAFIL CITRATE
  8. IMODIUM [Concomitant]
     Active Substance: LOPERAMIDE HYDROCHLORIDE
     Indication: DIARRHOEA
     Dosage: UNK
     Dates: end: 20141214
  9. LEVITRA [Concomitant]
     Active Substance: VARDENAFIL HYDROCHLORIDE TRIHYDRATE
  10. MORPHINE SULFATE. [Concomitant]
     Active Substance: MORPHINE SULFATE
  11. BENLYSTA [Suspect]
     Active Substance: BELIMUMAB
     Indication: SYSTEMIC LUPUS ERYTHEMATOSUS
     Dosage: UNK
     Dates: start: 2014
  12. ACYCLOVIR. [Concomitant]
     Active Substance: ACYCLOVIR
  13. PREDNISONE. [Concomitant]
     Active Substance: PREDNISONE
  14. BENADRYL [Concomitant]
     Active Substance: DIPHENHYDRAMINE HYDROCHLORIDE
     Indication: PRURITUS
  15. LORATIDINE [Concomitant]
     Active Substance: LORATADINE
  16. MELATONIN [Concomitant]
     Active Substance: MELATONIN
  17. RANITIDINE HYDROCHLORIDE. [Concomitant]
     Active Substance: RANITIDINE HYDROCHLORIDE

REACTIONS (5)
  - Skin irritation [Unknown]
  - Poor quality sleep [Unknown]
  - Pruritus [Recovering/Resolving]
  - Diarrhoea [Recovering/Resolving]
  - Anxiety [Unknown]

NARRATIVE: CASE EVENT DATE: 2014
